FAERS Safety Report 13572226 (Version 2)
Quarter: 2017Q2

REPORT INFORMATION
  Report Type: Spontaneous
  Country: US (occurrence: US)
  Receive Date: 20170523
  Receipt Date: 20170620
  Transmission Date: 20170830
  Serious: Yes (Other)
  Sender: FDA-Public Use
  Company Number: US-JNJFOC-20170512716

PATIENT
  Age: 59 Year
  Sex: Male

DRUGS (1)
  1. INVEGA TRINZA [Suspect]
     Active Substance: PALIPERIDONE PALMITATE
     Indication: PRODUCT USED FOR UNKNOWN INDICATION
     Route: 030
     Dates: start: 20170426

REACTIONS (4)
  - Visual impairment [Unknown]
  - Renal failure [Unknown]
  - Emergency care [Unknown]
  - Akathisia [Unknown]

NARRATIVE: CASE EVENT DATE: 2017
